FAERS Safety Report 11149198 (Version 1)
Quarter: 2015Q2

REPORT INFORMATION
  Report Type: Spontaneous
  Country: None (occurrence: None)
  Receive Date: 20150528
  Receipt Date: 20150528
  Transmission Date: 20150821
  Serious: Yes (Hospitalization, Disabling)
  Sender: FDA-Public Use
  Company Number: None

PATIENT
  Age: 25 Year
  Sex: Male
  Weight: 79.38 kg

DRUGS (1)
  1. FINASTERIDE 1 MG ACCORD [Suspect]
     Active Substance: FINASTERIDE
     Indication: ALOPECIA
     Dosage: 1 PILL
     Route: 048
     Dates: start: 20150105, end: 20150309

REACTIONS (6)
  - Dizziness [None]
  - Ejaculation failure [None]
  - Palpitations [None]
  - Libido decreased [None]
  - Chest discomfort [None]
  - Musculoskeletal stiffness [None]

NARRATIVE: CASE EVENT DATE: 20150302
